FAERS Safety Report 4338937-4 (Version None)
Quarter: 2004Q2

REPORT INFORMATION
  Report Type: 
  Country: None (occurrence: None)
  Receive Date: 20040409
  Receipt Date: 20040405
  Transmission Date: 20050107
  Serious: Yes (Death)
  Sender: FDA-Public Use
  Company Number: US-SHR-03-007385

PATIENT
  Age: 57 Year
  Sex: Male

DRUGS (2)
  1. BETASERON [Suspect]
     Indication: MULTIPLE SCLEROSIS
     Dosage: 8 MIU, EVERY 2D, SUBCUTANEOUS
     Route: 058
     Dates: start: 19951207, end: 20030101
  2. ^MANY^ [Concomitant]

REACTIONS (2)
  - CORONARY ARTERY OCCLUSION [None]
  - NEUROLEPTIC MALIGNANT SYNDROME [None]
